FAERS Safety Report 9042252 (Version 1)
Quarter: 2013Q1

REPORT INFORMATION
  Report Type: Report from Study
  Country: US (occurrence: US)
  Receive Date: 20130129
  Receipt Date: 20130129
  Transmission Date: 20140127
  Serious: No
  Sender: FDA-Public Use
  Company Number: US-ABBOTT-12P-163-0909041-00

PATIENT
  Age: 27 Year
  Sex: Female

DRUGS (3)
  1. HUMIRA 40 MG/0.8 ML PEN [Suspect]
     Indication: CROHN^S DISEASE
     Dates: start: 20120111
  2. 6-MP [Concomitant]
     Indication: CROHN^S DISEASE
     Dosage: 50 MG DAILY
  3. VITAMIN B12 [Concomitant]
     Indication: VITAMIN B12 DEFICIENCY

REACTIONS (3)
  - Nasopharyngitis [Not Recovered/Not Resolved]
  - Sinus congestion [Unknown]
  - Cough [Unknown]
